FAERS Safety Report 7381629-8 (Version None)
Quarter: 2011Q1

REPORT INFORMATION
  Report Type: 
  Country: None (occurrence: None)
  Receive Date: 20110329
  Receipt Date: 20100921
  Transmission Date: 20110831
  Serious: Yes (Hospitalization)
  Sender: FDA-Public Use
  Company Number: US-BAYER-200930282NA

PATIENT
  Sex: Female
  Weight: 71 kg

DRUGS (7)
  1. FLAGYL [Concomitant]
     Route: 065
  2. HYDROCODONE BITARTRATE AND ACETAMINOPHEN [Concomitant]
     Dosage: 5/500. EVERY THREE YOURS AS NEEDED.
     Route: 065
  3. METHERGINE [Concomitant]
     Route: 065
  4. XOPENEX [Concomitant]
     Dosage: UNK
     Dates: start: 20070101, end: 20070301
  5. YAZ [Suspect]
     Indication: PRODUCT USED FOR UNKNOWN INDICATION
     Dosage: UNK
     Route: 048
     Dates: start: 20070301, end: 20070401
  6. HERBAL PREPARATION [Concomitant]
  7. DOXYCYCLINE [Concomitant]
     Dosage: 200 MG (DAILY DOSE), BID, UNKNOWN
     Route: 065

REACTIONS (4)
  - PAIN [None]
  - ANXIETY [None]
  - NERVOUSNESS [None]
  - PULMONARY EMBOLISM [None]
